FAERS Safety Report 4615821-X (Version None)
Quarter: 2005Q1

REPORT INFORMATION
  Report Type: 
  Country: None (occurrence: None)
  Receive Date: 20050321
  Receipt Date: 20050310
  Transmission Date: 20050727
  Serious: Yes (Hospitalization)
  Sender: FDA-Public Use
  Company Number: GXKR2005US00746

PATIENT
  Age: 58 Year
  Sex: Male

DRUGS (1)
  1. METFORMIN (NGX) (METFORMIN) [Suspect]
     Indication: DIABETES MELLITUS NON-INSULIN-DEPENDENT
     Dosage: 500 MG, BID

REACTIONS (3)
  - ERYTHEMA MULTIFORME [None]
  - PAIN [None]
  - RASH PRURITIC [None]
